FAERS Safety Report 9230172 (Version 1)
Quarter: 2013Q2

REPORT INFORMATION
  Report Type: Spontaneous
  Country: US (occurrence: US)
  Receive Date: 20130415
  Receipt Date: 20130415
  Transmission Date: 20140414
  Serious: No
  Sender: FDA-Public Use
  Company Number: US-BAYER-2013-041933

PATIENT
  Age: 25 Year
  Sex: Female

DRUGS (1)
  1. NATAZIA [Suspect]
     Indication: CONTRACEPTION
     Dosage: UNK
     Route: 048

REACTIONS (2)
  - Amenorrhoea [None]
  - Vaginal odour [None]
